FAERS Safety Report 7774836-3 (Version None)
Quarter: 2011Q3

REPORT INFORMATION
  Report Type: 
  Country: None (occurrence: None)
  Receive Date: 20110923
  Receipt Date: 20110915
  Transmission Date: 20111222
  Serious: Yes (Hospitalization)
  Sender: FDA-Public Use
  Company Number: US-JNJFOC-20100205611

PATIENT
  Sex: Female
  Weight: 57.15 kg

DRUGS (12)
  1. PREVACID [Concomitant]
  2. NEURONTIN [Concomitant]
  3. CLONAZEPAM [Concomitant]
  4. MIRALAX [Concomitant]
  5. ERYTHROMYCIN [Concomitant]
  6. CLONAZEPAM [Concomitant]
  7. ZOFRAN [Concomitant]
  8. PREDNISONE [Concomitant]
  9. INFLIXIMAB [Suspect]
     Indication: INFLAMMATORY BOWEL DISEASE
     Route: 042
  10. MESALAMINE [Concomitant]
     Route: 048
  11. SENOKOT [Concomitant]
     Dosage: 2-4 TABS
  12. DULCOLAX [Concomitant]
     Dosage: 1-3 SUPPOSITORIES DAILY AS NEEDED

REACTIONS (1)
  - IMPAIRED GASTRIC EMPTYING [None]
